FAERS Safety Report 7914445-6 (Version None)
Quarter: 2011Q4

REPORT INFORMATION
  Report Type: 
  Country: None (occurrence: None)
  Receive Date: 20111115
  Receipt Date: 20111109
  Transmission Date: 20120403
  Serious: Yes (Other)
  Sender: FDA-Public Use
  Company Number: US-CELGENEUS-163-21880-08011048

PATIENT
  Age: 69 Year
  Sex: Male

DRUGS (13)
  1. REVLIMID [Suspect]
     Dosage: 2.5 MILLIGRAM
     Route: 048
     Dates: start: 20080122
  2. JUICE PLUS [Concomitant]
     Dosage: 2 TABLET
     Route: 048
  3. METOPROLOL [Concomitant]
     Dosage: 25 MILLIGRAM
     Route: 065
  4. YOHIMBE [Concomitant]
     Dosage: 2
     Route: 048
  5. ASPIRIN [Concomitant]
     Dosage: 81 MILLIGRAM
     Route: 065
  6. VYTORIN [Concomitant]
     Dosage: 10/20
     Route: 048
  7. REVLIMID [Suspect]
     Dosage: 5 MILLIGRAM
     Route: 048
     Dates: start: 20080110, end: 20080116
  8. ALLOPURINOL [Concomitant]
     Dosage: 300 MILLIGRAM
     Route: 065
  9. PROTONIX [Concomitant]
     Dosage: 40 MILLIGRAM
     Route: 065
  10. LOVAZA [Concomitant]
     Dosage: 1000 MILLIGRAM
     Route: 065
  11. VALTREX [Concomitant]
     Dosage: 500 MILLIGRAM
     Route: 065
  12. ARGININE [Concomitant]
     Dosage: 1-2 TABS
     Route: 048
  13. L-CITRULINE [Concomitant]
     Dosage: 1500 MILLIGRAM
     Route: 065

REACTIONS (1)
  - TUMOUR FLARE [None]
